FAERS Safety Report 4615786-0 (Version None)
Quarter: 2005Q2

REPORT INFORMATION
  Report Type: 
  Country: None (occurrence: None)
  Receive Date: 20050310
  Receipt Date: 20050131
  Transmission Date: 20051028
  Serious: Yes (Hospitalization)
  Sender: FDA-Public Use
  Company Number: A03200403399

PATIENT
  Age: 48 Year
  Sex: Female
  Weight: 66.2252 kg

DRUGS (6)
  1. ELOXATIN [Suspect]
     Indication: COLON CANCER
     Dosage: 146 MG OTHER - INTRAVENOUS NOS
     Route: 042
     Dates: start: 20040825, end: 20040825
  2. ELOXATIN [Suspect]
     Indication: METASTASES TO LIVER
     Dosage: 146 MG OTHER - INTRAVENOUS NOS
     Route: 042
     Dates: start: 20040825, end: 20040825
  3. LEUCOVORIN CALCIUM [Suspect]
     Indication: COLON CANCER
     Dosage: INTRAVENOUS NOS
     Route: 042
     Dates: start: 20040825
  4. LEUCOVORIN CALCIUM [Suspect]
     Indication: METASTASES TO LIVER
     Dosage: INTRAVENOUS NOS
     Route: 042
     Dates: start: 20040825
  5. DOLASETRON MESILATE [Concomitant]
  6. DEXAMETHASONE [Concomitant]

REACTIONS (4)
  - INJECTION SITE ERYTHEMA [None]
  - INJECTION SITE EXTRAVASATION [None]
  - INJECTION SITE INFECTION [None]
  - INJECTION SITE PAIN [None]
